FAERS Safety Report 7364491-9 (Version None)
Quarter: 2011Q1

REPORT INFORMATION
  Report Type: 
  Country: None (occurrence: None)
  Receive Date: 20110321
  Receipt Date: 20110314
  Transmission Date: 20110831
  Serious: Yes (Life-Threatening, Hospitalization, Disabling, Other)
  Sender: FDA-Public Use
  Company Number: JP-SANOFI-AVENTIS-2010SA072981

PATIENT
  Age: 47 Year
  Sex: Male
  Weight: 83 kg

DRUGS (39)
  1. ELPLAT [Suspect]
     Route: 041
     Dates: start: 20090728, end: 20090728
  2. XELODA [Suspect]
     Route: 048
     Dates: start: 20100209, end: 20100405
  3. ZOMETA [Suspect]
     Indication: RECTAL CANCER
     Route: 041
     Dates: start: 20100914, end: 20101028
  4. FLUOROURACIL [Concomitant]
     Indication: RECTAL CANCER
     Route: 040
     Dates: start: 20090629, end: 20090714
  5. FLUOROURACIL [Concomitant]
     Route: 040
     Dates: start: 20090728, end: 20090908
  6. PYRINAZIN [Concomitant]
     Indication: PYREXIA
     Route: 048
     Dates: start: 20100601, end: 20100601
  7. ELPLAT [Suspect]
     Route: 041
     Dates: start: 20100119, end: 20100119
  8. ELPLAT [Suspect]
     Route: 041
     Dates: start: 20100413, end: 20100413
  9. CALCIUM LEVOFOLINATE [Concomitant]
     Route: 041
     Dates: start: 20090728, end: 20090908
  10. CELESTAMINE TAB [Concomitant]
     Indication: RASH
     Route: 048
     Dates: start: 20090715, end: 20100325
  11. NERISONA [Concomitant]
     Indication: RASH
     Route: 061
     Dates: start: 20090715
  12. ELPLAT [Suspect]
     Route: 041
     Dates: start: 20101028, end: 20101028
  13. AVASTIN [Suspect]
     Route: 041
     Dates: start: 20101028, end: 20101028
  14. CALCIUM LEVOFOLINATE [Concomitant]
     Indication: RECTAL CANCER
     Route: 041
     Dates: start: 20090629, end: 20090714
  15. FLUOROURACIL [Concomitant]
     Route: 041
     Dates: start: 20090629, end: 20090714
  16. DEXAMETHASONE SODIUM PHOSPHATE [Concomitant]
     Route: 041
     Dates: start: 20100119, end: 20101028
  17. POLARAMINE [Concomitant]
     Indication: PREMEDICATION
     Route: 041
     Dates: start: 20090714, end: 20101028
  18. CELESTAMINE TAB [Concomitant]
     Indication: PYREXIA
     Route: 048
     Dates: start: 20090715, end: 20100325
  19. ELPLAT [Suspect]
     Route: 041
     Dates: start: 20101005, end: 20101005
  20. XELODA [Suspect]
     Indication: RECTAL CANCER
     Route: 048
     Dates: start: 20100119, end: 20100201
  21. AVASTIN [Suspect]
     Indication: RECTAL CANCER
     Route: 041
     Dates: start: 20090714, end: 20090714
  22. AVASTIN [Suspect]
     Route: 041
     Dates: start: 20100413, end: 20100413
  23. FLUOROURACIL [Concomitant]
     Route: 041
     Dates: start: 20090728, end: 20090908
  24. KYTRIL [Concomitant]
     Indication: PREMEDICATION
     Route: 041
     Dates: start: 20090629, end: 20090908
  25. ELPLAT [Suspect]
     Indication: RECTAL CANCER
     Route: 041
     Dates: start: 20090629, end: 20090629
  26. XELODA [Suspect]
     Route: 048
     Dates: start: 20100413, end: 20101010
  27. GRANISETRON HCL [Concomitant]
     Indication: PREMEDICATION
     Route: 041
     Dates: start: 20100119, end: 20101028
  28. CELESTAMINE TAB [Concomitant]
     Route: 048
     Dates: start: 20090715, end: 20100325
  29. TAMSULOSIN HYDROCHLORIDE [Concomitant]
     Indication: DYSURIA
     Route: 048
     Dates: start: 20090908, end: 20090921
  30. PROTECADIN [Concomitant]
     Indication: ABDOMINAL PAIN UPPER
     Route: 048
     Dates: start: 20100119, end: 20101027
  31. ELPLAT [Suspect]
     Route: 041
     Dates: start: 20100209, end: 20100209
  32. DEXAMETHASONE SODIUM PHOSPHATE [Concomitant]
     Indication: PREMEDICATION
     Dosage: 8-6.6 MG
     Route: 041
     Dates: start: 20090629, end: 20101028
  33. CELESTAMINE TAB [Concomitant]
     Route: 048
     Dates: start: 20090715, end: 20100325
  34. LOXONIN [Concomitant]
     Indication: PYREXIA
     Dosage: UNK-60 MG
     Route: 048
     Dates: start: 20090908, end: 20100325
  35. WARFARIN SODIUM [Concomitant]
     Indication: SUBCLAVIAN VEIN THROMBOSIS
     Route: 048
     Dates: start: 20100413, end: 20100930
  36. INDISETRON [Concomitant]
     Indication: NAUSEA
     Route: 048
     Dates: start: 20090825
  37. PLETAL [Concomitant]
     Indication: SUBCLAVIAN VEIN THROMBOSIS
     Route: 048
     Dates: start: 20090825, end: 20100412
  38. BIFIDOBACTERIUM BIFIDUM/ENTEROCOCCUS FAECIUM [Concomitant]
     Route: 048
     Dates: start: 20100302
  39. MOBIC [Concomitant]
     Route: 048
     Dates: start: 20100511

REACTIONS (7)
  - PLATELET COUNT DECREASED [None]
  - THROMBOSIS [None]
  - HAEMOLYTIC ANAEMIA [None]
  - DISSEMINATED INTRAVASCULAR COAGULATION [None]
  - HAEMATURIA [None]
  - RENAL FAILURE ACUTE [None]
  - THROMBOTIC MICROANGIOPATHY [None]
